FAERS Safety Report 14170265 (Version 2)
Quarter: 2017Q4

REPORT INFORMATION
  Report Type: Spontaneous
  Country: US (occurrence: US)
  Receive Date: 20171108
  Receipt Date: 20171127
  Transmission Date: 20180321
  Serious: Yes (Other)
  Sender: FDA-Public Use
  Company Number: US-PFIZER INC-2017476118

PATIENT
  Age: 70 Year
  Sex: Female
  Weight: 62 kg

DRUGS (14)
  1. PROLIA [Concomitant]
     Active Substance: DENOSUMAB
     Indication: OSTEOPOROSIS
     Dosage: UNK(INFUSION EVERY 6 MONTHS)
  2. VITAMIN D [Concomitant]
     Active Substance: CHOLECALCIFEROL
     Indication: OSTEOPENIA
  3. FAMOTIDINE. [Concomitant]
     Active Substance: FAMOTIDINE
     Indication: REFLUX GASTRITIS
     Dosage: 40 MG, 2X/DAY
     Route: 048
  4. SINGULAIR [Concomitant]
     Active Substance: MONTELUKAST SODIUM
     Indication: ASTHMA
     Dosage: 10 MG, 1X/DAY
     Route: 048
  5. CLARINEX [Concomitant]
     Active Substance: DESLORATADINE
     Indication: ASTHMA
     Dosage: 5 MG, 1X/DAY
     Route: 048
  6. ADVAIR HFA [Concomitant]
     Active Substance: FLUTICASONE PROPIONATE\SALMETEROL XINAFOATE
     Indication: ASTHMA
     Dosage: UNK UNK, 2X/DAY(FLUTICASONE PROPIONATE:115/ SALMETERO:21)/ONE PUFF TWICE A DAY
  7. CALCIUM CITRATE [Concomitant]
     Active Substance: CALCIUM CITRATE
     Indication: OSTEOPOROSIS
     Dosage: 600 MG, DAILY
     Route: 048
  8. MONTELUKAST [Concomitant]
     Active Substance: MONTELUKAST SODIUM
     Indication: ASTHMA
     Dosage: 10 MG, 1X/DAY
     Route: 048
  9. ALBUTEROL. [Concomitant]
     Active Substance: ALBUTEROL
     Indication: ASTHMA
     Dosage: 117 UG, AS NEEDED(ONE PUFF AS NEEDED FOR SHORTNESS OF BREATH)
  10. VITAMIN D [Concomitant]
     Active Substance: CHOLECALCIFEROL
     Indication: OSTEOPOROSIS
     Dosage: 1000 IU, DAILY
     Route: 048
     Dates: start: 2014
  11. ALBUTEROL. [Concomitant]
     Active Substance: ALBUTEROL
     Indication: DYSPNOEA
  12. FLUTICASONE PROPIONATE. [Concomitant]
     Active Substance: FLUTICASONE PROPIONATE
     Indication: HYPERSENSITIVITY
     Dosage: DAILY (ONE SPRAY IN EACH NOSTRIL DAILY)
     Route: 045
  13. AROMASIN [Suspect]
     Active Substance: EXEMESTANE
     Indication: BREAST CANCER
     Dosage: 25 MG, 1X/DAY
     Route: 048
     Dates: start: 201707, end: 201710
  14. CLARINEX [Concomitant]
     Active Substance: DESLORATADINE
     Indication: HYPERSENSITIVITY

REACTIONS (2)
  - Weight bearing difficulty [Unknown]
  - Arthropathy [Recovering/Resolving]
